FAERS Safety Report 7623507-2 (Version None)
Quarter: 2011Q3

REPORT INFORMATION
  Report Type: 
  Country: None (occurrence: None)
  Receive Date: 20110720
  Receipt Date: 20110712
  Transmission Date: 20111222
  Serious: Yes (Other)
  Sender: FDA-Public Use
  Company Number: CN-JNJFOC-20110508444

PATIENT
  Sex: Male

DRUGS (1)
  1. KETOCONAZOLE [Suspect]
     Indication: TINEA PEDIS
     Dosage: 1 GRAM
     Route: 061
     Dates: start: 20110512, end: 20110518

REACTIONS (3)
  - PRODUCT COUNTERFEIT [None]
  - SKIN EROSION [None]
  - PRURITUS [None]
